FAERS Safety Report 10383763 (Version 3)
Quarter: 2014Q3

REPORT INFORMATION
  Report Type: Spontaneous
  Country: JP (occurrence: JP)
  Receive Date: 20140814
  Receipt Date: 20140918
  Transmission Date: 20150326
  Serious: Yes (Hospitalization)
  Sender: FDA-Public Use
  Company Number: JP-ASTRAZENECA-2014SE46655

PATIENT
  Age: 31312 Day
  Sex: Female
  Weight: 56 kg

DRUGS (11)
  1. MERISLON [Suspect]
     Active Substance: BETAHISTINE MESILATE
     Indication: DIZZINESS
     Route: 048
     Dates: end: 20140618
  2. DIOVAN [Suspect]
     Active Substance: VALSARTAN
     Indication: HYPERTENSION
     Route: 048
     Dates: start: 201401, end: 20140618
  3. NEXIUM [Suspect]
     Active Substance: ESOMEPRAZOLE MAGNESIUM
     Indication: GASTROOESOPHAGEAL REFLUX DISEASE
     Route: 048
  4. KARY UNI [Concomitant]
     Active Substance: PIRENOXINE
     Indication: CATARACT
     Dosage: DOSE UNKNOWN
     Route: 047
  5. CEFOCEF [Concomitant]
     Active Substance: CEFOPERAZONE SODIUM\SULBACTAM SODIUM
     Indication: INFECTION PROPHYLAXIS
     Route: 041
     Dates: start: 20140624, end: 20140626
  6. ADONA [Concomitant]
     Active Substance: CARBAZOCHROME SODIUM SULFONATE
     Indication: INFECTION PROPHYLAXIS
     Route: 041
     Dates: start: 20140624
  7. SOLYUGEN F [Concomitant]
     Indication: INFECTION PROPHYLAXIS
     Route: 041
     Dates: start: 20140624
  8. TRAVELMIN [Suspect]
     Active Substance: DIMENHYDRINATE
     Indication: DIZZINESS
     Route: 048
     Dates: end: 20140618
  9. TRANSAMIN [Concomitant]
     Active Substance: TRANEXAMIC ACID
     Indication: INFECTION PROPHYLAXIS
     Route: 041
     Dates: start: 20140624
  10. MAGMITT [Suspect]
     Active Substance: MAGNESIUM OXIDE
     Indication: CONSTIPATION
     Route: 048
  11. SEISHOKU [Concomitant]
     Active Substance: SODIUM CHLORIDE
     Indication: INFECTION PROPHYLAXIS
     Route: 041
     Dates: start: 20140624, end: 20140626

REACTIONS (2)
  - Chronic hepatitis B [Recovering/Resolving]
  - Hepatic function abnormal [Recovering/Resolving]

NARRATIVE: CASE EVENT DATE: 20140612
